FAERS Safety Report 20710187 (Version 4)
Quarter: 2023Q1

REPORT INFORMATION
  Report Type: Report from Study
  Country: US (occurrence: US)
  Receive Date: 20220414
  Receipt Date: 20230209
  Transmission Date: 20230418
  Serious: Yes (Other)
  Sender: FDA-Public Use
  Company Number: US-TAKEDA-2022TUS023955

PATIENT
  Age: 3 Year
  Sex: Male

DRUGS (12)
  1. TEDUGLUTIDE [Suspect]
     Active Substance: TEDUGLUTIDE
     Indication: Short-bowel syndrome
     Dosage: 0.6 MILLIGRAM, QD
     Route: 042
     Dates: start: 20200829
  2. TEDUGLUTIDE [Suspect]
     Active Substance: TEDUGLUTIDE
     Indication: Short-bowel syndrome
     Dosage: 0.6 MILLIGRAM, QD
     Route: 042
     Dates: start: 20200829
  3. TEDUGLUTIDE [Suspect]
     Active Substance: TEDUGLUTIDE
     Indication: Short-bowel syndrome
     Dosage: 0.6 MILLIGRAM, QD
     Route: 042
     Dates: start: 20200829
  4. TEDUGLUTIDE [Suspect]
     Active Substance: TEDUGLUTIDE
     Indication: Short-bowel syndrome
     Dosage: 0.6 MILLIGRAM, QD
     Route: 042
     Dates: start: 20200829
  5. FERINSOL [Concomitant]
     Indication: Iron deficiency anaemia
     Dosage: 2.30 MILLILITER, QD
     Route: 048
     Dates: start: 20210908
  6. FERINSOL [Concomitant]
     Dosage: 3 MILLILITER, QD
     Route: 048
     Dates: start: 20220509
  7. FLAGYL [Concomitant]
     Active Substance: METRONIDAZOLE\METRONIDAZOLE HYDROCHLORIDE
     Indication: Gastrointestinal bacterial overgrowth
     Dosage: 1.90 MILLILITER, BID
     Route: 050
     Dates: start: 20210331
  8. FLAGYL [Concomitant]
     Active Substance: METRONIDAZOLE\METRONIDAZOLE HYDROCHLORIDE
     Dosage: 2.10 MILLILITER, BID
     Route: 050
     Dates: start: 20220126
  9. CLONAZEPAM [Concomitant]
     Active Substance: CLONAZEPAM
     Indication: Muscle spasticity
     Dosage: 0.05 MILLIGRAM
     Route: 048
     Dates: start: 20210222, end: 20210222
  10. CLONAZEPAM [Concomitant]
     Active Substance: CLONAZEPAM
     Indication: Hypertonia
     Dosage: 0.04 MILLIGRAM, BID
     Route: 048
     Dates: start: 20210222, end: 20210222
  11. CLONAZEPAM [Concomitant]
     Active Substance: CLONAZEPAM
     Dosage: 1.3 MILLILITER, QD
     Route: 048
     Dates: start: 20210614
  12. ENOXAPARIN [Concomitant]
     Active Substance: ENOXAPARIN
     Indication: Anticoagulant therapy
     Dosage: 0.07 MILLILITER, BID
     Route: 058
     Dates: start: 20220211

REACTIONS (1)
  - Hyperkalaemia [Recovered/Resolved]

NARRATIVE: CASE EVENT DATE: 20220112
